FAERS Safety Report 13456689 (Version 7)
Quarter: 2018Q2

REPORT INFORMATION
  Report Type: Report from Study
  Country: GB (occurrence: GB)
  Receive Date: 20170419
  Receipt Date: 20180412
  Transmission Date: 20180711
  Serious: Yes (Hospitalization)
  Sender: FDA-Public Use
  Company Number: PHHO2017GB006542

PATIENT
  Age: 50 Year
  Sex: Female
  Weight: 75 kg

DRUGS (4)
  1. TYKERB [Suspect]
     Active Substance: LAPATINIB DITOSYLATE
     Dosage: UNK
     Route: 048
     Dates: start: 20170816, end: 20170819
  2. CAPECITABINE. [Suspect]
     Active Substance: CAPECITABINE
     Indication: BREAST CANCER METASTATIC
     Dosage: UNK
     Route: 048
     Dates: start: 20110630
  3. CAPECITABINE. [Suspect]
     Active Substance: CAPECITABINE
     Dosage: UNK
     Route: 048
     Dates: start: 20171220, end: 20180102
  4. TYKERB [Suspect]
     Active Substance: LAPATINIB DITOSYLATE
     Indication: BREAST CANCER METASTATIC
     Dosage: UNK
     Route: 048
     Dates: start: 20110630, end: 20170405

REACTIONS (5)
  - Urinary tract infection [Recovered/Resolved]
  - Infection [Recovered/Resolved]
  - Urinary tract infection [Recovered/Resolved with Sequelae]
  - Escherichia urinary tract infection [Recovered/Resolved]
  - Urinary tract infection [Recovered/Resolved]

NARRATIVE: CASE EVENT DATE: 20170405
